FAERS Safety Report 7152800-5 (Version None)
Quarter: 2010Q4

REPORT INFORMATION
  Report Type: 
  Country: None (occurrence: None)
  Receive Date: 20101213
  Receipt Date: 20101129
  Transmission Date: 20110411
  Serious: Yes (Other)
  Sender: FDA-Public Use
  Company Number: PHHY2010CL81173

PATIENT
  Age: 79 Year
  Sex: Female

DRUGS (8)
  1. EXFORGE [Suspect]
     Indication: HYPERTENSION
     Dosage: 160/5MG, ONE TABLET PER DAY
  2. EUTIROX [Concomitant]
     Dosage: 125 MG
  3. ALLOPURINOL [Concomitant]
  4. ESTAPROL [Concomitant]
  5. ANTALIN [Concomitant]
  6. ASPIRIN [Concomitant]
  7. CALCIUM [Concomitant]
  8. DIMEFLINE [Concomitant]

REACTIONS (7)
  - BLOOD CREATINE INCREASED [None]
  - DEPRESSION [None]
  - DIZZINESS [None]
  - FLUID RETENTION [None]
  - HEADACHE [None]
  - HYPERTENSION [None]
  - OEDEMA PERIPHERAL [None]
